FAERS Safety Report 6836928-2 (Version None)
Quarter: 2010Q3

REPORT INFORMATION
  Report Type: 
  Country: None (occurrence: None)
  Receive Date: 20100713
  Receipt Date: 20100629
  Transmission Date: 20110219
  Serious: Yes (Other)
  Sender: FDA-Public Use
  Company Number: PHHY2010DE43179

PATIENT
  Age: 80 Year
  Sex: Female

DRUGS (4)
  1. ZOLEDRONATE [Suspect]
     Indication: MULTIPLE MYELOMA
     Route: 065
  2. IBANDRONATE SODIUM [Suspect]
     Indication: MULTIPLE MYELOMA
  3. CHEMOTHERAPEUTICS NOS [Concomitant]
  4. STEROIDS NOS [Concomitant]

REACTIONS (5)
  - ACTINOMYCOSIS [None]
  - BONE DISORDER [None]
  - BONE LESION EXCISION [None]
  - IMPAIRED HEALING [None]
  - OSTEONECROSIS OF JAW [None]
